FAERS Safety Report 8350639-6 (Version None)
Quarter: 2012Q2

REPORT INFORMATION
  Report Type: 
  Country: None (occurrence: None)
  Receive Date: 20120510
  Receipt Date: 20120501
  Transmission Date: 20120825
  Serious: Yes (Hospitalization)
  Sender: FDA-Public Use
  Company Number: NL-MEDIMMUNE-MEDI-0014391

PATIENT
  Sex: Male

DRUGS (4)
  1. SYNAGIS [Suspect]
     Indication: PREMATURE BABY
     Route: 030
     Dates: start: 20111108, end: 20111205
  2. FERRO [Concomitant]
     Dates: start: 20110101
  3. SYNAGIS [Suspect]
     Route: 030
     Dates: start: 20120103
  4. POLYETHYLENE GLYCOL [Concomitant]
     Dates: start: 20110101

REACTIONS (2)
  - WEIGHT DECREASED [None]
  - INFANTILE SPITTING UP [None]
